FAERS Safety Report 7607894-7 (Version None)
Quarter: 2011Q3

REPORT INFORMATION
  Report Type: 
  Country: None (occurrence: None)
  Receive Date: 20110714
  Receipt Date: 20110705
  Transmission Date: 20111222
  Serious: No
  Sender: FDA-Public Use
  Company Number: US-BIOGENIDEC-2011BI024971

PATIENT
  Sex: Female

DRUGS (3)
  1. TYSABRI [Suspect]
     Route: 042
     Dates: start: 20080512, end: 20090216
  2. TYSABRI [Suspect]
     Route: 042
     Dates: start: 20100315, end: 20101020
  3. TYSABRI [Suspect]
     Indication: MULTIPLE SCLEROSIS
     Route: 042
     Dates: start: 20110630

REACTIONS (5)
  - MENTAL IMPAIRMENT [None]
  - HALLUCINATION [None]
  - INSOMNIA [None]
  - DEPRESSED MOOD [None]
  - URINARY TRACT INFECTION [None]
